FAERS Safety Report 18517939 (Version 2)
Quarter: 2021Q2

REPORT INFORMATION
  Report Type: Spontaneous
  Country: US (occurrence: US)
  Receive Date: 20201118
  Receipt Date: 20210611
  Transmission Date: 20210717
  Serious: No
  Sender: FDA-Public Use
  Company Number: US-PFIZER INC-2019424136

PATIENT
  Age: 53 Year
  Sex: Female

DRUGS (3)
  1. PRISTIQ EXTENDED?RELEASE [Suspect]
     Active Substance: DESVENLAFAXINE SUCCINATE
     Indication: DEPRESSION
  2. PRISTIQ EXTENDED?RELEASE [Suspect]
     Active Substance: DESVENLAFAXINE SUCCINATE
     Indication: ANXIETY DISORDER
     Dosage: 200 MG, DAILY (TWO 100 MG TABLETS EVERY MORNING)
     Route: 048
  3. PRISTIQ EXTENDED?RELEASE [Suspect]
     Active Substance: DESVENLAFAXINE SUCCINATE
     Indication: BIPOLAR DISORDER
     Dosage: 150 MG, DAILY (ONE 100 MG TABLET AND ONE 50 MG TABLET)

REACTIONS (1)
  - Drug ineffective [Unknown]
